FAERS Safety Report 6823509-X (Version None)
Quarter: 2010Q3

REPORT INFORMATION
  Report Type: 
  Country: None (occurrence: None)
  Receive Date: 20100708
  Receipt Date: 20100629
  Transmission Date: 20110219
  Serious: Yes (Hospitalization, Other)
  Sender: FDA-Public Use
  Company Number: JP-PFIZER INC-2010074364

PATIENT
  Age: 58 Year
  Sex: Female

DRUGS (1)
  1. AZULFIDINE [Suspect]
     Dosage: UNK

REACTIONS (3)
  - ERYTHEMA [None]
  - PYREXIA [None]
  - SWELLING [None]
